FAERS Safety Report 7715087-8 (Version None)
Quarter: 2011Q3

REPORT INFORMATION
  Report Type: 
  Country: None (occurrence: None)
  Receive Date: 20110829
  Receipt Date: 20110815
  Transmission Date: 20111222
  Serious: Yes (Hospitalization)
  Sender: FDA-Public Use
  Company Number: PHHY2011BR73761

PATIENT
  Sex: Female

DRUGS (2)
  1. DIOVAN [Suspect]
     Dosage: 320 MG
  2. GALVUS [Concomitant]
     Dosage: 50 MG

REACTIONS (3)
  - DIABETES MELLITUS [None]
  - INFARCTION [None]
  - HYPERTENSION [None]
